FAERS Safety Report 10223064 (Version 2)
Quarter: 2014Q3

REPORT INFORMATION
  Report Type: Report from Study
  Country: BR (occurrence: BR)
  Receive Date: 20140607
  Receipt Date: 20140829
  Transmission Date: 20150326
  Serious: Yes (Other)
  Sender: FDA-Public Use
  Company Number: PHHY2014BR066857

PATIENT
  Sex: Female
  Weight: 47 kg

DRUGS (5)
  1. EXJADE [Suspect]
     Active Substance: DEFERASIROX
     Dosage: 2 DF (500MG), AT NIGHT
     Route: 048
  2. EXJADE [Suspect]
     Active Substance: DEFERASIROX
     Indication: ANAEMIA
     Dosage: 3 DF (225MG), AT NIGHT
  3. HYDREA [Suspect]
     Active Substance: HYDROXYUREA
     Dosage: UNK UKN, UNK
  4. FOLIC ACID. [Concomitant]
     Active Substance: FOLIC ACID
     Indication: ANAEMIA
     Dosage: 1 DF, DAILY
     Route: 048
  5. VITAMIN B COMPLEX NOS [Concomitant]
     Active Substance: CYANOCOBALAMIN\PYRIDOXINE HYDROCHLORIDE\RIBOFLAVIN\SODIUM PANTOTHENATE\THIAMINE HYDROCHLORIDE\VITAMIN B COMPLEX
     Indication: ANAEMIA
     Dosage: 1 DF, DAILY
     Route: 048

REACTIONS (14)
  - Hypothyroidism [Recovering/Resolving]
  - Hepatitis C [Not Recovered/Not Resolved]
  - Throat irritation [Recovering/Resolving]
  - Compulsions [Recovered/Resolved]
  - Product quality issue [Unknown]
  - Insomnia [Recovered/Resolved]
  - Skin ulcer [Recovering/Resolving]
  - Scar pain [Recovering/Resolving]
  - Anaemia [Recovered/Resolved]
  - Cardiac murmur [Not Recovered/Not Resolved]
  - Wrong technique in drug usage process [Unknown]
  - Immunoglobulins decreased [Recovered/Resolved]
  - Pain in extremity [Recovered/Resolved]
  - Weight decreased [Recovered/Resolved]
